FAERS Safety Report 21700304 (Version 1)
Quarter: 2022Q4

REPORT INFORMATION
  Report Type: Spontaneous
  Country: CA (occurrence: CA)
  Receive Date: 20221208
  Receipt Date: 20221208
  Transmission Date: 20230113
  Serious: Yes (Death, Life-Threatening, Hospitalization)
  Sender: FDA-Public Use
  Company Number: CA-AstraZeneca-2022A353485

PATIENT
  Age: 33 Year
  Sex: Female

DRUGS (1)
  1. TRASTUZUMAB DERUXTECAN [Suspect]
     Active Substance: TRASTUZUMAB DERUXTECAN
     Indication: Hormone receptor positive HER2 negative breast cancer
     Dosage: 410 MG, ONCE EVERY 3 WK
     Route: 042

REACTIONS (5)
  - COVID-19 [Fatal]
  - Death [Fatal]
  - Dyspnoea [Fatal]
  - General physical health deterioration [Fatal]
  - Hospitalisation [Unknown]
